FAERS Safety Report 14604305 (Version 2)
Quarter: 2018Q1

REPORT INFORMATION
  Report Type: Spontaneous
  Country: DE (occurrence: DE)
  Receive Date: 20180306
  Receipt Date: 20180306
  Transmission Date: 20180509
  Serious: Yes (Other)
  Sender: FDA-Public Use
  Company Number: PHHY2009DE075256

PATIENT
  Age: 51 Year
  Sex: Male

DRUGS (9)
  1. NEOTIGASON [Suspect]
     Active Substance: ACITRETIN
     Indication: PSORIASIS
     Dosage: UNK
     Route: 065
  2. CICLOSPORIN [Suspect]
     Active Substance: CYCLOSPORINE
     Indication: PSORIASIS
     Dosage: 125 MG, UNK
     Route: 065
  3. ENBREL [Suspect]
     Active Substance: ETANERCEPT
     Indication: PSORIASIS
     Dosage: 100 MG, UNK
     Route: 065
     Dates: start: 20070601
  4. FUMADERM [Suspect]
     Active Substance: CALCIUM MONOETHYLFUMARATE\DIMETHYL FUMARATE\MAGNESIUM MONOETHYLFUMARATE\ZINC MONOETHYLFUMARATE
     Indication: PSORIASIS
     Dosage: UNK
     Route: 065
     Dates: start: 20010101, end: 20050101
  5. REMICADE [Suspect]
     Active Substance: INFLIXIMAB
     Indication: PSORIASIS
     Dosage: LYOPHILIZED POWDER, WEEKS 0,2,6 AND 14 RESPECTIVELY, SHORT INFUSIONS, THEN 6 INFUSIONS
     Route: 042
     Dates: start: 20051001
  6. CALCIPOTRIOL [Concomitant]
     Active Substance: CALCIPOTRIENE
     Indication: PRODUCT USED FOR UNKNOWN INDICATION
     Dosage: DOSAGE FORM: UNSPECIFIED
     Route: 061
  7. HUMIRA [Suspect]
     Active Substance: ADALIMUMAB
     Indication: PSORIASIS
     Dosage: 40 MG, UNK
     Route: 058
     Dates: start: 20070101
  8. METHOTREXATE. [Suspect]
     Active Substance: METHOTREXATE
     Indication: PSORIASIS
     Dosage: UNK
     Route: 065
  9. ENBREL [Suspect]
     Active Substance: ETANERCEPT
     Indication: PSORIASIS

REACTIONS (7)
  - Hyperkeratosis [Unknown]
  - Blood pressure increased [Unknown]
  - Malignant melanoma [Recovered/Resolved]
  - Psoriasis [Unknown]
  - Therapy non-responder [Recovered/Resolved]
  - Malignant melanoma stage I [Recovered/Resolved]
  - Keratoacanthoma [Recovering/Resolving]

NARRATIVE: CASE EVENT DATE: 20070201
